FAERS Safety Report 4315506-3 (Version None)
Quarter: 2004Q1

REPORT INFORMATION
  Report Type: 
  Country: None (occurrence: None)
  Receive Date: 20040311
  Receipt Date: 20020321
  Transmission Date: 20041129
  Serious: Yes (Disabling)
  Sender: FDA-Public Use
  Company Number: WAES 0204AUS00072

PATIENT
  Sex: Male

DRUGS (1)
  1. ZOCOR [Suspect]
     Route: 048
     Dates: start: 19920101

REACTIONS (4)
  - FEELING ABNORMAL [None]
  - FOOD INTERACTION [None]
  - MYALGIA [None]
  - PERIARTHRITIS [None]
